FAERS Safety Report 6829742-5 (Version None)
Quarter: 2010Q3

REPORT INFORMATION
  Report Type: 
  Country: None (occurrence: None)
  Receive Date: 20100709
  Receipt Date: 20070525
  Transmission Date: 20110219
  Serious: No
  Sender: FDA-Public Use
  Company Number: US-PFIZER INC-2007013646

PATIENT
  Sex: Female
  Weight: 62.6 kg

DRUGS (8)
  1. CHANTIX [Suspect]
  2. PRILOSEC [Concomitant]
  3. ADVAIR DISKUS 100/50 [Concomitant]
  4. BENICAR [Concomitant]
  5. AMBIEN [Concomitant]
  6. HYDROCHLOROTHIAZIDE [Concomitant]
  7. CALCIUM CARBONATE [Concomitant]
  8. PROZAC [Concomitant]

REACTIONS (3)
  - DEPRESSION [None]
  - FATIGUE [None]
  - SOMNOLENCE [None]
